FAERS Safety Report 5109650-0 (Version None)
Quarter: 2006Q3

REPORT INFORMATION
  Report Type: 
  Country: None (occurrence: None)
  Receive Date: 20060920
  Receipt Date: 20060911
  Transmission Date: 20061208
  Serious: Yes (Hospitalization)
  Sender: FDA-Public Use
  Company Number: CG-MERCK-0609USA02384

PATIENT
  Age: 35 Year
  Sex: Female

DRUGS (1)
  1. STROMECTOL [Suspect]
     Route: 048
     Dates: start: 20060216, end: 20060216

REACTIONS (2)
  - HEADACHE [None]
  - OCULAR HYPERAEMIA [None]
